FAERS Safety Report 20403801 (Version 1)
Quarter: 2022Q1

REPORT INFORMATION
  Report Type: Report from Study
  Country: US (occurrence: US)
  Receive Date: 20220131
  Receipt Date: 20220131
  Transmission Date: 20220424
  Serious: Yes (Other)
  Sender: FDA-Public Use
  Company Number: US-TG THERAPEUTICS INC.-TGT002359

PATIENT
  Sex: Female

DRUGS (2)
  1. UMBRALISIB [Suspect]
     Active Substance: UMBRALISIB
     Indication: B-cell lymphoma
     Dosage: 600 MILLIGRAM, QD
     Route: 048
     Dates: start: 20210508
  2. PREDNISONE [Concomitant]
     Active Substance: PREDNISONE
     Indication: Product used for unknown indication

REACTIONS (4)
  - Parkinson^s disease [Unknown]
  - Visual impairment [Not Recovered/Not Resolved]
  - Liver disorder [Unknown]
  - Myalgia [Not Recovered/Not Resolved]
